FAERS Safety Report 19964766 (Version 1)
Quarter: 2021Q4

REPORT INFORMATION
  Report Type: Spontaneous
  Country: US (occurrence: US)
  Receive Date: 20211018
  Receipt Date: 20211018
  Transmission Date: 20220303
  Serious: No
  Sender: FDA-Public Use
  Company Number: US-PFIZER INC-202101367305

PATIENT

DRUGS (1)
  1. TALZENNA [Interacting]
     Active Substance: TALAZOPARIB TOSYLATE
     Dosage: UNK

REACTIONS (1)
  - Food interaction [Unknown]
